FAERS Safety Report 7832015-5 (Version None)
Quarter: 2011Q4

REPORT INFORMATION
  Report Type: 
  Country: None (occurrence: None)
  Receive Date: 20111021
  Receipt Date: 20111012
  Transmission Date: 20120403
  Serious: Yes (Hospitalization)
  Sender: FDA-Public Use
  Company Number: JP-ASTRAZENECA-2011SE56485

PATIENT
  Age: 66 Year
  Sex: Female
  Weight: 44 kg

DRUGS (5)
  1. LEBENIN [Concomitant]
     Indication: GASTRIC ULCER
     Route: 048
     Dates: start: 20110112, end: 20110119
  2. GASMOTIN [Concomitant]
     Indication: GASTRITIS ATROPHIC
     Route: 048
     Dates: start: 20101018, end: 20110228
  3. OMEPRAZOLE [Suspect]
     Indication: GASTRIC ULCER
     Route: 048
     Dates: start: 20110112, end: 20110119
  4. CLARITHROMYCIN [Suspect]
     Indication: GASTRIC ULCER
     Route: 048
     Dates: start: 20110112, end: 20110119
  5. AMOXICILLIN [Suspect]
     Indication: GASTRIC ULCER
     Route: 048
     Dates: start: 20110112, end: 20110119

REACTIONS (1)
  - LIVER DISORDER [None]
